FAERS Safety Report 6539437-3 (Version None)
Quarter: 2010Q1

REPORT INFORMATION
  Report Type: 
  Country: None (occurrence: None)
  Receive Date: 20100115
  Receipt Date: 20100106
  Transmission Date: 20100710
  Serious: Yes (Hospitalization)
  Sender: FDA-Public Use
  Company Number: JP-AMGEN-US385232

PATIENT
  Age: 71 Year
  Sex: Female

DRUGS (2)
  1. ENBREL [Suspect]
     Indication: RHEUMATOID ARTHRITIS
  2. PREDNISOLONE [Concomitant]
     Indication: RHEUMATOID ARTHRITIS

REACTIONS (6)
  - ABSCESS [None]
  - BACTERAEMIA [None]
  - CONDITION AGGRAVATED [None]
  - MYCOBACTERIUM ABSCESSUS INFECTION [None]
  - OSTEOMYELITIS [None]
  - POLYARTHRITIS [None]
